FAERS Safety Report 9404510 (Version 2)
Quarter: 2013Q3

REPORT INFORMATION
  Report Type: Spontaneous
  Country: US (occurrence: US)
  Receive Date: 20130717
  Receipt Date: 20130719
  Transmission Date: 20140515
  Serious: No
  Sender: FDA-Public Use
  Company Number: US-PFIZER INC-2013206550

PATIENT
  Age: 62 Year
  Sex: Male
  Weight: 77.1 kg

DRUGS (2)
  1. ALDACTONE [Suspect]
     Indication: HYPERTENSION
     Dosage: 100 MG, 2X/DAY
  2. LASIX [Concomitant]
     Dosage: 20 MG, 1X/DAY

REACTIONS (2)
  - Breast enlargement [Not Recovered/Not Resolved]
  - Breast tenderness [Unknown]
